FAERS Safety Report 24890292 (Version 2)
Quarter: 2025Q1

REPORT INFORMATION
  Report Type: Spontaneous
  Country: CA (occurrence: CA)
  Receive Date: 20250127
  Receipt Date: 20250203
  Transmission Date: 20250409
  Serious: Yes (Other)
  Sender: SANDOZ
  Company Number: CA-SANDOZ-SDZ2025CA004789

PATIENT
  Age: 11 Year

DRUGS (2)
  1. AMPHETAMINE [Suspect]
     Active Substance: AMPHETAMINE
     Indication: Product used for unknown indication
     Dosage: 5 MG, QD
     Route: 065
  2. AMPHETAMINE [Suspect]
     Active Substance: AMPHETAMINE
     Route: 065

REACTIONS (4)
  - Erythema [Recovered/Resolved]
  - Oedema [Recovered/Resolved]
  - Lip pruritus [Recovered/Resolved]
  - Ulcer [Unknown]
